FAERS Safety Report 23242087 (Version 1)
Quarter: 2023Q4

REPORT INFORMATION
  Report Type: Spontaneous
  Country: GB (occurrence: GB)
  Receive Date: 20231129
  Receipt Date: 20231129
  Transmission Date: 20240110
  Serious: Yes (Other)
  Sender: FDA-Public Use
  Company Number: GB-MYLANLABS-2023M1107021

PATIENT
  Age: 25 Year
  Sex: Male

DRUGS (3)
  1. CLOZARIL [Suspect]
     Active Substance: CLOZAPINE
     Indication: Schizophrenia
     Dosage: UNK
     Route: 048
     Dates: start: 20230918
  2. AMOXICILLIN [Concomitant]
     Active Substance: AMOXICILLIN
     Indication: Lower respiratory tract infection
     Dosage: UNK
     Route: 065
  3. OLANZAPINE [Concomitant]
     Active Substance: OLANZAPINE
     Dosage: 5 MILLIGRAM, PM
     Route: 065
     Dates: start: 20231005

REACTIONS (7)
  - Lower respiratory tract infection [Unknown]
  - Pyrexia [Unknown]
  - Tachycardia [Unknown]
  - C-reactive protein increased [Unknown]
  - Pleural effusion [Unknown]
  - Eosinophilia [Unknown]
  - Medication error [Unknown]

NARRATIVE: CASE EVENT DATE: 20231005
